FAERS Safety Report 16163438 (Version 1)
Quarter: 2019Q2

REPORT INFORMATION
  Report Type: Spontaneous
  Country: US (occurrence: US)
  Receive Date: 20190405
  Receipt Date: 20190405
  Transmission Date: 20190711
  Serious: Yes (Death, Hospitalization)
  Sender: FDA-Public Use
  Company Number: US-JNJFOC-20190406580

PATIENT
  Sex: Male

DRUGS (1)
  1. XARELTO [Suspect]
     Active Substance: RIVAROXABAN
     Indication: THROMBOSIS PROPHYLAXIS
     Route: 048
     Dates: start: 201206, end: 201702

REACTIONS (3)
  - Gastrointestinal haemorrhage [Unknown]
  - Death [Fatal]
  - Internal haemorrhage [Unknown]

NARRATIVE: CASE EVENT DATE: 20170222
